FAERS Safety Report 7122209-9 (Version None)
Quarter: 2010Q4

REPORT INFORMATION
  Report Type: 
  Country: None (occurrence: None)
  Receive Date: 20101119
  Receipt Date: 20101119
  Transmission Date: 20110411
  Serious: Yes (Hospitalization, Other)
  Sender: FDA-Public Use
  Company Number: None

PATIENT
  Age: 48 Year
  Sex: Female
  Weight: 61.6892 kg

DRUGS (1)
  1. OXYCONTIN [Suspect]
     Indication: HAEMORRHAGE INTRACRANIAL
     Dosage: 10 MG 2 TIMES DAY PO ; 15 MG 3 TIMES DAY PO
     Route: 048
     Dates: start: 20100901, end: 20101118

REACTIONS (27)
  - ASTHENIA [None]
  - BALANCE DISORDER [None]
  - BLOOD GLUCOSE INCREASED [None]
  - CONSTIPATION [None]
  - CRYING [None]
  - DECREASED APPETITE [None]
  - DIZZINESS [None]
  - DRUG INEFFECTIVE [None]
  - DRY SKIN [None]
  - DYSPNOEA [None]
  - FATIGUE [None]
  - FLUSHING [None]
  - GRIP STRENGTH DECREASED [None]
  - HYPERHIDROSIS [None]
  - HYPERTENSION [None]
  - INSOMNIA [None]
  - IRRITABILITY [None]
  - MOOD SWINGS [None]
  - NAUSEA [None]
  - NIGHT SWEATS [None]
  - OEDEMA PERIPHERAL [None]
  - PAIN [None]
  - PRODUCT FORMULATION ISSUE [None]
  - PROTEIN URINE [None]
  - RENAL FUNCTION TEST ABNORMAL [None]
  - THYROID FUNCTION TEST ABNORMAL [None]
  - VISION BLURRED [None]
